FAERS Safety Report 6725668-6 (Version None)
Quarter: 2010Q2

REPORT INFORMATION
  Report Type: 
  Country: None (occurrence: None)
  Receive Date: 20100513
  Receipt Date: 20100513
  Transmission Date: 20101027
  Serious: No
  Sender: FDA-Public Use
  Company Number: None

PATIENT
  Age: 76 Year
  Sex: Female
  Weight: 70.3075 kg

DRUGS (3)
  1. IPRATROPIUM BROMIDE AND ALBUTEROL SULFATE [Suspect]
     Indication: BRONCHITIS
     Dosage: 1-3ML VIAL 4 TIMES DAY
     Dates: start: 20100411
  2. IPRATROPIUM BROMIDE AND ALBUTEROL SULFATE [Suspect]
     Indication: BRONCHITIS
     Dosage: 1-3ML VIAL 4 TIMES DAY
     Dates: start: 20100412
  3. IPRATROPIUM BROMIDE AND ALBUTEROL SULFATE [Suspect]
     Indication: BRONCHITIS
     Dosage: 1-3ML VIAL 4 TIMES DAY
     Dates: start: 20100413

REACTIONS (3)
  - CONFUSIONAL STATE [None]
  - DYSGEUSIA [None]
  - VOMITING [None]
